FAERS Safety Report 8239503-0 (Version None)
Quarter: 2012Q1

REPORT INFORMATION
  Report Type: 
  Country: None (occurrence: None)
  Receive Date: 20120328
  Receipt Date: 20120326
  Transmission Date: 20120608
  Serious: No
  Sender: FDA-Public Use
  Company Number: US-PFIZER INC-2012078311

PATIENT
  Sex: Male
  Weight: 122 kg

DRUGS (1)
  1. NICOTROL [Suspect]
     Indication: SMOKING CESSATION THERAPY
     Dosage: UNK,  6-7 TIMES A DAY AS NEEDED
     Route: 055
     Dates: start: 20120201

REACTIONS (1)
  - DRUG INEFFECTIVE [None]
